FAERS Safety Report 16004549 (Version 5)
Quarter: 2020Q3

REPORT INFORMATION
  Report Type: Report from Study
  Country: US (occurrence: US)
  Receive Date: 20190226
  Receipt Date: 20200911
  Transmission Date: 20201102
  Serious: Yes (Hospitalization, Other)
  Sender: FDA-Public Use
  Company Number: US-TAKEDA-2018TUS036021

PATIENT
  Age: 56 Year
  Sex: Female

DRUGS (7)
  1. GABAPENTIN. [Concomitant]
     Active Substance: GABAPENTIN
  2. PONATINIB [Suspect]
     Active Substance: PONATINIB
     Indication: ACUTE LYMPHOCYTIC LEUKAEMIA
     Dosage: 15 MILLIGRAM, QD
     Route: 048
     Dates: start: 20170426
  3. ONDANSETRON HCL [Concomitant]
     Active Substance: ONDANSETRON HYDROCHLORIDE
  4. PONATINIB [Suspect]
     Active Substance: PONATINIB
     Dosage: 15 MILLIGRAM, QD
     Route: 048
     Dates: start: 201812
  5. PONATINIB [Suspect]
     Active Substance: PONATINIB
     Dosage: 15 MILLIGRAM, QD
     Route: 048
     Dates: start: 201912
  6. OXYCODONE HYDROCHLORIDE. [Concomitant]
     Active Substance: OXYCODONE HYDROCHLORIDE
  7. CODEINE [Concomitant]
     Active Substance: CODEINE
     Dosage: UNK

REACTIONS (11)
  - Red blood cell count decreased [Unknown]
  - White blood cell count decreased [Unknown]
  - Plasma cell myeloma in remission [Unknown]
  - Pain in extremity [Unknown]
  - Haematocrit decreased [Unknown]
  - Bone pain [Unknown]
  - Arthralgia [Unknown]
  - Herpes zoster [Unknown]
  - Haemoglobin decreased [Unknown]
  - Vomiting [Unknown]
  - Rash [Unknown]

NARRATIVE: CASE EVENT DATE: 20190213
